FAERS Safety Report 9681425 (Version 1)
Quarter: 2013Q4

REPORT INFORMATION
  Report Type: Report from Study
  Country: US (occurrence: US)
  Receive Date: 20131111
  Receipt Date: 20131111
  Transmission Date: 20140711
  Serious: Yes (Other)
  Sender: FDA-Public Use
  Company Number: US-SA-2013SA113014

PATIENT
  Age: 68 Year
  Sex: Male

DRUGS (1)
  1. RENVELA [Suspect]
     Indication: RENAL FAILURE CHRONIC
     Route: 048

REACTIONS (3)
  - Gastrointestinal mucosal disorder [Unknown]
  - Mucosal inflammation [Unknown]
  - Gastric polyps [Unknown]
